FAERS Safety Report 4706988-3 (Version None)
Quarter: 2005Q2

REPORT INFORMATION
  Report Type: 
  Country: None (occurrence: None)
  Receive Date: 20050630
  Receipt Date: 20050615
  Transmission Date: 20051028
  Serious: Yes (Hospitalization)
  Sender: FDA-Public Use
  Company Number: 2005-BP-10091RO

PATIENT
  Sex: Male
  Weight: 2.574 kg

DRUGS (2)
  1. CALCIUM CARBONATE (CALCIUM CARBONATE) [Suspect]
     Dosage: IN  UTERO EXPOSURE OF UP TO 10 TABS/DAY (3 GM ELEM. CA) (680 MG), IU
     Route: 015
  2. MAGNESIUM CARBONATE (MAGNESIUM CARBONATE) [Suspect]
     Dosage: IN UTERO EXPOSURE OF UP TO 10 TABS/DAY (80 MG), IU
     Route: 015

REACTIONS (6)
  - BLOOD CALCIUM INCREASED [None]
  - DYSPEPSIA [None]
  - JAUNDICE [None]
  - RESPIRATORY DISTRESS [None]
  - SELF-MEDICATION [None]
  - SEPSIS [None]
